FAERS Safety Report 6626982-5 (Version None)
Quarter: 2010Q1

REPORT INFORMATION
  Report Type: 
  Country: None (occurrence: None)
  Receive Date: 20100311
  Receipt Date: 20100305
  Transmission Date: 20100710
  Serious: Yes (Death, Other)
  Sender: FDA-Public Use
  Company Number: GR-CELGENEUS-066-20785-10030805

PATIENT

DRUGS (11)
  1. THALIDOMIDE [Suspect]
     Indication: MULTIPLE MYELOMA
     Route: 048
  2. THALIDOMIDE [Suspect]
     Route: 048
  3. REVLIMID [Suspect]
     Indication: MULTIPLE MYELOMA
     Route: 048
  4. BORTEZOMIB [Suspect]
     Indication: MULTIPLE MYELOMA
     Route: 051
  5. BORTEZOMIB [Suspect]
     Route: 051
  6. DOXORUBICIN [Suspect]
     Indication: MULTIPLE MYELOMA
     Route: 051
  7. DOXORUBICIN [Suspect]
     Route: 051
  8. MELPHALAN HYDROCHLORIDE [Suspect]
     Indication: MULTIPLE MYELOMA
     Route: 048
  9. DEXAMETHASONE [Suspect]
     Indication: MULTIPLE MYELOMA
     Route: 065
  10. DEXAMETHASONE [Suspect]
     Route: 065
  11. DEXAMETHASONE [Suspect]
     Route: 065

REACTIONS (6)
  - DEATH [None]
  - INFECTION [None]
  - NEUROPATHY PERIPHERAL [None]
  - NEUTROPENIA [None]
  - SEPTIC SHOCK [None]
  - THROMBOCYTOPENIA [None]
